FAERS Safety Report 4782013-3 (Version None)
Quarter: 2005Q3

REPORT INFORMATION
  Report Type: 
  Country: None (occurrence: None)
  Receive Date: 20050928
  Receipt Date: 20050919
  Transmission Date: 20060218
  Serious: Yes (Death)
  Sender: FDA-Public Use
  Company Number: US-MERCK-0509USA02595

PATIENT
  Age: 87 Year
  Sex: Male
  Weight: 70 kg

DRUGS (3)
  1. VIOXX [Suspect]
     Indication: ARTHROPATHY
     Route: 048
     Dates: start: 20010208, end: 20031112
  2. ISOSORBIDE MONONITRATE [Concomitant]
     Route: 065
  3. AMLODIPINE BESYLATE [Concomitant]
     Route: 065

REACTIONS (3)
  - CARDIAC DISORDER [None]
  - HYPERTENSION [None]
  - MYOCARDIAL INFARCTION [None]
